FAERS Safety Report 8206984-8 (Version None)
Quarter: 2012Q1

REPORT INFORMATION
  Report Type: 
  Country: None (occurrence: None)
  Receive Date: 20120314
  Receipt Date: 20120302
  Transmission Date: 20120608
  Serious: Yes (Hospitalization)
  Sender: FDA-Public Use
  Company Number: US-ELI_LILLY_AND_COMPANY-US201105007848

PATIENT
  Sex: Female

DRUGS (6)
  1. FORTEO [Suspect]
     Dosage: 20 UG, QD
     Route: 058
  2. FORTEO [Suspect]
     Dosage: 20 UG, QD
  3. FORTEO [Suspect]
     Dosage: 20 UG, QD
     Route: 058
  4. FORTEO [Suspect]
     Dosage: 20 UG, QD
     Route: 058
  5. SOFTENERS, EMOLLIENTS [Concomitant]
  6. FORTEO [Suspect]
     Indication: OSTEOPOROSIS
     Dosage: 20 UG, QD
     Route: 058
     Dates: start: 20110101

REACTIONS (21)
  - LIGAMENT SPRAIN [None]
  - HYPOAESTHESIA [None]
  - INJECTION SITE PAIN [None]
  - MALAISE [None]
  - DEPRESSION [None]
  - MUSCLE SPASMS [None]
  - DRUG DOSE OMISSION [None]
  - MEDICATION ERROR [None]
  - THERAPEUTIC PROCEDURE [None]
  - HAEMATOCHEZIA [None]
  - MUSCLE DISORDER [None]
  - INJECTION SITE DISCOMFORT [None]
  - NERVOUSNESS [None]
  - CONSTIPATION [None]
  - WHITE BLOOD CELL COUNT INCREASED [None]
  - CONTUSION [None]
  - MOOD ALTERED [None]
  - INJECTION SITE HAEMATOMA [None]
  - FALL [None]
  - MEMORY IMPAIRMENT [None]
  - PAIN [None]
